FAERS Safety Report 16038457 (Version 1)
Quarter: 2019Q1

REPORT INFORMATION
  Report Type: Spontaneous
  Country: CA (occurrence: CA)
  Receive Date: 20190305
  Receipt Date: 20190305
  Transmission Date: 20190418
  Serious: Yes (Other)
  Sender: FDA-Public Use
  Company Number: CA-SHIRE-CA201906848

PATIENT

DRUGS (1)
  1. VPRIV [Suspect]
     Active Substance: VELAGLUCERASE ALFA
     Indication: GAUCHER^S DISEASE TYPE I
     Dosage: 4400 INTERNATIONAL UNIT EVERY OTHER WEEK
     Route: 065

REACTIONS (3)
  - Splenomegaly [Unknown]
  - Liver disorder [Unknown]
  - Thrombocytopenia [Unknown]
